FAERS Safety Report 8350496-8 (Version None)
Quarter: 2012Q2

REPORT INFORMATION
  Report Type: 
  Country: None (occurrence: None)
  Receive Date: 20120510
  Receipt Date: 20120430
  Transmission Date: 20120825
  Serious: Yes (Other)
  Sender: FDA-Public Use
  Company Number: CN-JNJFOC-20120508657

PATIENT

DRUGS (19)
  1. DOXORUBICIN HCL [Suspect]
     Indication: NON-HODGKIN'S LYMPHOMA
     Route: 042
  2. CYCLOPHOSPHAMIDE [Suspect]
     Indication: NON-HODGKIN'S LYMPHOMA
     Route: 042
  3. METHOTREXATE [Suspect]
     Indication: NON-HODGKIN'S LYMPHOMA
     Route: 042
  4. CYTARABINE [Suspect]
     Indication: NON-HODGKIN'S LYMPHOMA
     Route: 042
  5. DEXAMETHASONE [Suspect]
     Indication: NON-HODGKIN'S LYMPHOMA
     Route: 042
  6. MESNA [Suspect]
     Indication: ACUTE MYELOID LEUKAEMIA
     Route: 042
  7. EPIRUBICIN [Suspect]
     Indication: ACUTE MYELOID LEUKAEMIA
     Route: 042
  8. METHOTREXATE [Suspect]
     Indication: ACUTE LYMPHOCYTIC LEUKAEMIA
     Route: 042
  9. MESNA [Suspect]
     Indication: NON-HODGKIN'S LYMPHOMA
     Route: 042
  10. VINDESINE [Suspect]
     Indication: NON-HODGKIN'S LYMPHOMA
     Route: 042
  11. VINDESINE [Suspect]
     Indication: ACUTE LYMPHOCYTIC LEUKAEMIA
     Route: 042
  12. EPIRUBICIN [Suspect]
     Indication: NON-HODGKIN'S LYMPHOMA
     Route: 042
  13. DOXORUBICIN HCL [Suspect]
     Indication: ACUTE LYMPHOCYTIC LEUKAEMIA
     Route: 042
  14. VINCRISTINE [Suspect]
     Indication: NON-HODGKIN'S LYMPHOMA
     Route: 042
  15. CYCLOPHOSPHAMIDE [Suspect]
     Indication: ACUTE LYMPHOCYTIC LEUKAEMIA
     Route: 042
  16. VINCRISTINE [Suspect]
     Indication: ACUTE LYMPHOCYTIC LEUKAEMIA
     Route: 042
  17. CYTARABINE [Suspect]
     Indication: ACUTE LYMPHOCYTIC LEUKAEMIA
     Route: 042
  18. DEXAMETHASONE [Suspect]
     Indication: ACUTE LYMPHOCYTIC LEUKAEMIA
     Route: 042
  19. LEUCOVORIN CALCIUM [Concomitant]
     Route: 065

REACTIONS (2)
  - NEPHROPATHY TOXIC [None]
  - OFF LABEL USE [None]
